FAERS Safety Report 6894675-5 (Version None)
Quarter: 2010Q3

REPORT INFORMATION
  Report Type: 
  Country: None (occurrence: None)
  Receive Date: 20100802
  Receipt Date: 20090915
  Transmission Date: 20110219
  Serious: No
  Sender: FDA-Public Use
  Company Number: US-PFIZER INC-2009238337

PATIENT
  Sex: Female

DRUGS (5)
  1. GABAPENTIN [Suspect]
     Indication: BACK DISORDER
     Dosage: 600 MG, 3X/DAY
     Dates: start: 20090501
  2. GABAPENTIN [Suspect]
     Indication: NEURALGIA
  3. GABAPENTIN [Suspect]
     Dosage: 600 MG, 3X/DAY
     Dates: start: 20090630
  4. FUROSEMIDE [Concomitant]
     Indication: OEDEMA
     Dosage: UNK
  5. DILAUDID [Concomitant]
     Dosage: UNK

REACTIONS (10)
  - DISTURBANCE IN ATTENTION [None]
  - DRUG INEFFECTIVE [None]
  - FEELING ABNORMAL [None]
  - GAIT DISTURBANCE [None]
  - HEADACHE [None]
  - HYPERHIDROSIS [None]
  - LETHARGY [None]
  - PARAESTHESIA [None]
  - VERTIGO [None]
  - VISUAL IMPAIRMENT [None]
